FAERS Safety Report 4455639-4 (Version None)
Quarter: 2004Q3

REPORT INFORMATION
  Report Type: 
  Country: None (occurrence: None)
  Receive Date: 20040920
  Receipt Date: 20040908
  Transmission Date: 20050211
  Serious: No
  Sender: FDA-Public Use
  Company Number: 2004UW18858

PATIENT
  Age: 76 Year
  Sex: Female
  Weight: 56.6996 kg

DRUGS (4)
  1. TOPROL-XL [Suspect]
     Dates: end: 20040101
  2. BEANO [Suspect]
     Indication: FLATULENCE
     Dates: start: 20010101
  3. BENICAR [Suspect]
     Dates: end: 20040101
  4. LOZOL [Suspect]
     Dates: end: 20040101

REACTIONS (1)
  - ANGIONEUROTIC OEDEMA [None]
